FAERS Safety Report 14218314 (Version 1)
Quarter: 2017Q4

REPORT INFORMATION
  Report Type: Spontaneous
  Country: HR (occurrence: HR)
  Receive Date: 20171123
  Receipt Date: 20171123
  Transmission Date: 20180321
  Serious: Yes (Other)
  Sender: FDA-Public Use
  Company Number: HR-AMGEN-HRVSP2017173926

PATIENT
  Sex: Female

DRUGS (2)
  1. MIMPARA [Suspect]
     Active Substance: CINACALCET HYDROCHLORIDE
     Indication: BLOOD PARATHYROID HORMONE ABNORMAL
     Dosage: UNK
     Route: 065
     Dates: start: 2015
  2. PARICALCITOL. [Concomitant]
     Active Substance: PARICALCITOL
     Dosage: UNK
     Dates: start: 2014

REACTIONS (2)
  - Parathyroid hyperplasia [Unknown]
  - Drug ineffective [Unknown]

NARRATIVE: CASE EVENT DATE: 2015
